FAERS Safety Report 4506075-3 (Version None)
Quarter: 2004Q4

REPORT INFORMATION
  Report Type: 
  Country: None (occurrence: None)
  Receive Date: 20041119
  Receipt Date: 20041110
  Transmission Date: 20050328
  Serious: Yes (Other)
  Sender: FDA-Public Use
  Company Number: PHBS2004JP15318

PATIENT
  Age: 79 Year
  Sex: Male
  Weight: 54 kg

DRUGS (6)
  1. DIOVAN [Suspect]
     Indication: HYPERTENSION
     Dosage: 40 MG/DAY
     Route: 048
     Dates: start: 20030121, end: 20040111
  2. DIOVAN [Suspect]
     Dosage: 40 MG/DAY
     Route: 048
     Dates: start: 20040117, end: 20040129
  3. EBRANTIL [Suspect]
     Dosage: 15 MG/DAY
     Route: 048
  4. FLIVAS [Concomitant]
     Dosage: 25 MG, UNK
     Route: 048
  5. SOLANTAL [Concomitant]
     Dosage: 25 MG, UNK
     Route: 048
  6. RANITIDINE [Concomitant]
     Dosage: 150 MG, UNK
     Route: 048

REACTIONS (5)
  - BLOOD CHLORIDE INCREASED [None]
  - BLOOD CREATINE PHOSPHOKINASE INCREASED [None]
  - BLOOD LACTATE DEHYDROGENASE INCREASED [None]
  - FEELING ABNORMAL [None]
  - MUSCLE CRAMP [None]
